FAERS Safety Report 6050259-2 (Version None)
Quarter: 2009Q1

REPORT INFORMATION
  Report Type: 
  Country: None (occurrence: None)
  Receive Date: 20090126
  Receipt Date: 20090116
  Transmission Date: 20090719
  Serious: Yes (Other)
  Sender: FDA-Public Use
  Company Number: US-AMGEN-QUU296513

PATIENT
  Sex: Female
  Weight: 81.7 kg

DRUGS (5)
  1. ENBREL [Suspect]
     Indication: RHEUMATOID ARTHRITIS
     Route: 058
     Dates: start: 20030101
  2. METHOTREXATE [Concomitant]
     Dates: start: 19980101
  3. PLAQUENIL [Concomitant]
     Dates: start: 19940101
  4. ACTONEL [Concomitant]
     Dates: start: 20030101
  5. LASIX [Concomitant]
     Dates: start: 20040101

REACTIONS (4)
  - FEMUR FRACTURE [None]
  - OSTEOARTHRITIS [None]
  - OSTEONECROSIS [None]
  - PAIN IN EXTREMITY [None]
